FAERS Safety Report 9849729 (Version 1)
Quarter: 2014Q1

REPORT INFORMATION
  Report Type: Spontaneous
  Country: US (occurrence: None)
  Receive Date: 20140124
  Receipt Date: 20140124
  Transmission Date: 20141002
  Serious: Yes (Other)
  Sender: FDA-Public Use
  Company Number: None

PATIENT
  Age: 42 Year
  Sex: Male
  Weight: 86.18 kg

DRUGS (4)
  1. DIVALPROEX ER [Suspect]
     Indication: BIPOLAR I DISORDER
     Route: 048
     Dates: start: 20131129, end: 20140122
  2. LORAZEPAM [Concomitant]
  3. BUPROPION [Concomitant]
  4. DIVALPROEX [Concomitant]

REACTIONS (4)
  - Abdominal discomfort [None]
  - Product odour abnormal [None]
  - Product taste abnormal [None]
  - Drug ineffective [None]
